FAERS Safety Report 7769955-1 (Version None)
Quarter: 2011Q3

REPORT INFORMATION
  Report Type: 
  Country: None (occurrence: None)
  Receive Date: 20110922
  Receipt Date: 20110915
  Transmission Date: 20111222
  Serious: Yes (Hospitalization)
  Sender: FDA-Public Use
  Company Number: US-GLAXOSMITHKLINE-A0945494A

PATIENT
  Age: 84 Year
  Sex: Female

DRUGS (1)
  1. COREG [Suspect]
     Route: 065
     Dates: end: 20110801

REACTIONS (1)
  - ATRIAL FIBRILLATION [None]
